FAERS Safety Report 4443477-8 (Version None)
Quarter: 2004Q3

REPORT INFORMATION
  Report Type: 
  Country: None (occurrence: None)
  Receive Date: 20040907
  Receipt Date: 20040826
  Transmission Date: 20050211
  Serious: No
  Sender: FDA-Public Use
  Company Number: 2004UW18325

PATIENT
  Sex: Female

DRUGS (3)
  1. CRESTOR [Suspect]
     Dosage: 10 MG QD PO
     Route: 048
     Dates: start: 20040817
  2. ASPIRIN [Concomitant]
  3. ACEBUTOLOL [Concomitant]

REACTIONS (6)
  - BLOOD PRESSURE INCREASED [None]
  - DIFFICULTY IN WALKING [None]
  - ERYTHEMA [None]
  - HEADACHE [None]
  - OEDEMA PERIPHERAL [None]
  - SWELLING [None]
